FAERS Safety Report 20160662 (Version 1)
Quarter: 2021Q4

REPORT INFORMATION
  Report Type: Spontaneous
  Country: US (occurrence: None)
  Receive Date: 20211207
  Receipt Date: 20211207
  Transmission Date: 20220303
  Serious: Yes (Hospitalization, Disabling)
  Sender: FDA-Public Use
  Company Number: None

PATIENT
  Age: 71 Year
  Sex: Female
  Weight: 92.99 kg

DRUGS (2)
  1. NARDIL [Suspect]
     Active Substance: PHENELZINE SULFATE
     Dates: start: 19800601, end: 20100520
  2. NARDIL [Suspect]
     Active Substance: PHENELZINE SULFATE

REACTIONS (6)
  - Product substitution issue [None]
  - Product dosage form issue [None]
  - Heart rate increased [None]
  - Chest pain [None]
  - Condition aggravated [None]
  - Unemployment [None]

NARRATIVE: CASE EVENT DATE: 20030501
